FAERS Safety Report 8107528-1 (Version None)
Quarter: 2012Q1

REPORT INFORMATION
  Report Type: 
  Country: None (occurrence: None)
  Receive Date: 20120202
  Receipt Date: 20120127
  Transmission Date: 20120608
  Serious: Yes (Other)
  Sender: FDA-Public Use
  Company Number: DE-ROCHE-1029588

PATIENT
  Sex: Female
  Weight: 66 kg

DRUGS (8)
  1. LERCANIDIPINE [Concomitant]
     Route: 048
     Dates: start: 20110718
  2. AVASTIN [Suspect]
     Indication: BREAST CANCER METASTATIC
     Route: 042
  3. AVASTIN [Suspect]
     Route: 042
     Dates: start: 20090311, end: 20120110
  4. RAMIPRIL [Concomitant]
     Indication: HYPERTENSION
     Route: 048
     Dates: start: 20100706
  5. BISOPROLOL [Concomitant]
  6. IBANDRONATE SODIUM [Concomitant]
     Route: 048
     Dates: start: 20110107
  7. ZOLADEX [Concomitant]
     Route: 058
     Dates: end: 20050101
  8. LOSARTAN POTASSIUM [Concomitant]
     Indication: HYPERTENSION
     Route: 048
     Dates: start: 20120104

REACTIONS (3)
  - PROTEINURIA [None]
  - HYPERTENSION [None]
  - RENAL FAILURE [None]
